FAERS Safety Report 8053075 (Version 6)
Quarter: 2014Q2

REPORT INFORMATION
  Report Type: Spontaneous
  Country: US (occurrence: US)
  Receive Date: 20110725
  Receipt Date: 20140507
  Transmission Date: 20141212
  Serious: Yes (Death, Hospitalization)
  Sender: FDA-Public Use
  Company Number: US-B.I. PHARMACEUTICALS,INC./RIDGEFIELD-2011-BP-18332BP

PATIENT
  Age: 73 Year
  Sex: Female
  Weight: 52.16 kg

DRUGS (8)
  1. PRADAXA [Suspect]
     Indication: ANTICOAGULANT THERAPY
     Dosage: 300 MG
     Route: 048
     Dates: start: 20110226, end: 20110611
  2. ALLOPURINOL [Concomitant]
     Dosage: 300 MG
     Route: 065
     Dates: start: 2008, end: 2011
  3. ATENOLOL [Concomitant]
     Dosage: 25 MG
     Route: 065
     Dates: start: 2008, end: 2011
  4. LEVOTHYROXINE [Concomitant]
     Dosage: 25 MG
     Route: 065
  5. LEXAPRO [Concomitant]
     Dosage: 20 MG
     Route: 065
     Dates: start: 2009, end: 2011
  6. PROTONIX [Concomitant]
     Dosage: 40 MG
     Route: 065
  7. SKELAXIN [Concomitant]
     Dosage: 240 MG
     Route: 065
  8. ULTRAM [Concomitant]
     Route: 065

REACTIONS (6)
  - Upper gastrointestinal haemorrhage [Fatal]
  - Respiratory failure [Unknown]
  - Hypotension [Unknown]
  - Renal failure acute [Unknown]
  - Anaemia [Unknown]
  - Shock haemorrhagic [Unknown]
